FAERS Safety Report 9366400 (Version 1)
Quarter: 2013Q2

REPORT INFORMATION
  Report Type: Spontaneous
  Country: US (occurrence: None)
  Receive Date: 20130620
  Receipt Date: 20130620
  Transmission Date: 20140414
  Serious: Yes (Hospitalization)
  Sender: FDA-Public Use
  Company Number: UTC-033887

PATIENT
  Age: 42 Year
  Sex: 0

DRUGS (14)
  1. REMODULIN [Suspect]
     Indication: PULMONARY ARTERIAL HYPERTENSION
     Dosage: 2.663 MG/DAY (1 IN 1 MIN), INTRAVENOUS DRIP
     Route: 041
     Dates: start: 20120926
  2. REMODULIN [Suspect]
     Indication: SYSTEMIC LUPUS ERYTHEMATOSUS
     Dosage: 2.663 MG/DAY (1 IN 1 MIN), INTRAVENOUS DRIP
     Route: 041
     Dates: start: 20120926
  3. ADVIL(IBUPROFEN)(UNKNOWN) [Concomitant]
  4. ALPRAZOLAM (UNKNOWN) [Concomitant]
  5. CALPRAZOLAM (UNKNOWN) [Concomitant]
  6. COUMADIN (WARFARIN SODIUM) (UNKNOWN) [Concomitant]
  7. DEPAKOTE (VALPROATE SEMISODIUM) (UNKNOWN) [Concomitant]
  8. MULTIVITAMIN /00831/(UNKNOWN) [Concomitant]
  9. NEXIUM (ESOMEPRAZOLE MAGNESIUM) (UNKNOWN) [Concomitant]
  10. OMEGA 3 (FISH OIL) (UNKNOWN) [Concomitant]
  11. OSCAL (CALCIUM CARBONATE) (UNKNOWN) [Concomitant]
  12. PLAQUENIL (HYDROXYCHLOROQUINE) (UNKNOWN) [Concomitant]
  13. SILDENAFIL (UNKNOWN) [Concomitant]
  14. PREDNISONE (UNKNOWN) [Concomitant]

REACTIONS (10)
  - Overdose [None]
  - Flushing [None]
  - Headache [None]
  - Nausea [None]
  - Vomiting [None]
  - Hypotension [None]
  - Tachycardia [None]
  - Oxygen saturation decreased [None]
  - Dizziness [None]
  - Implant site effusion [None]
